FAERS Safety Report 9159082 (Version 1)
Quarter: 2013Q1

REPORT INFORMATION
  Report Type: Spontaneous
  Country: US (occurrence: None)
  Receive Date: 20130211
  Receipt Date: 20130211
  Transmission Date: 20140127
  Serious: Yes (Hospitalization)
  Sender: FDA-Public Use
  Company Number: UTC-028305

PATIENT
  Age: 62 Year
  Sex: Female
  Weight: 80.9 kg

DRUGS (1)
  1. REMODULIN [Suspect]
     Indication: COR PULMONALE CHRONIC
     Dosage: (0.05 UG/KG, 1 IN 1 MIN)
     Route: 058
     Dates: start: 20120107

REACTIONS (4)
  - Haemoptysis [None]
  - Platelet disorder [None]
  - Pulmonary oedema [None]
  - Pulmonary veno-occlusive disease [None]
